FAERS Safety Report 5563342-2 (Version None)
Quarter: 2007Q4

REPORT INFORMATION
  Report Type: 
  Country: None (occurrence: None)
  Receive Date: 20071212
  Receipt Date: 20071129
  Transmission Date: 20080405
  Serious: Yes (Other)
  Sender: FDA-Public Use
  Company Number: PAR_01758_2007

PATIENT
  Sex: Female
  Weight: 49.4421 kg

DRUGS (2)
  1. MEGACE ES [Suspect]
     Indication: CACHEXIA
     Dosage: 6525 MG/5ML ORAL)
     Route: 048
     Dates: start: 20070816, end: 20071004
  2. MEGACE ES [Suspect]
     Indication: NEOPLASM MALIGNANT
     Dosage: 6525 MG/5ML ORAL)
     Route: 048
     Dates: start: 20070816, end: 20071004

REACTIONS (8)
  - BALANCE DISORDER [None]
  - DECREASED APPETITE [None]
  - FALL [None]
  - HYPOVOLAEMIA [None]
  - LOSS OF CONSCIOUSNESS [None]
  - MOUTH ULCERATION [None]
  - THERAPEUTIC AGENT TOXICITY [None]
  - WEIGHT DECREASED [None]
